FAERS Safety Report 7502743-X (Version None)
Quarter: 2011Q2

REPORT INFORMATION
  Report Type: 
  Country: None (occurrence: None)
  Receive Date: 20110525
  Receipt Date: 20110519
  Transmission Date: 20111010
  Serious: Yes (Hospitalization, Disabling, Other)
  Sender: FDA-Public Use
  Company Number: BR-PFIZER INC-2011108787

PATIENT
  Age: 87 Year
  Sex: Male

DRUGS (1)
  1. LIPITOR [Suspect]
     Dosage: UNK
     Route: 048

REACTIONS (10)
  - FACIAL SPASM [None]
  - TREMOR [None]
  - ACNE [None]
  - SLOW RESPONSE TO STIMULI [None]
  - LIP OEDEMA [None]
  - COUGH [None]
  - URINARY INCONTINENCE [None]
  - BLOOD PRESSURE INADEQUATELY CONTROLLED [None]
  - MUSCULAR WEAKNESS [None]
  - HYPOTENSION [None]
